FAERS Safety Report 5487431-6 (Version None)
Quarter: 2007Q4

REPORT INFORMATION
  Report Type: 
  Country: None (occurrence: None)
  Receive Date: 20071015
  Receipt Date: 20071008
  Transmission Date: 20080405
  Serious: Yes (Death, Hospitalization)
  Sender: FDA-Public Use
  Company Number: 229-C5013-07100300

PATIENT
  Age: 82 Year
  Sex: Male

DRUGS (18)
  1. CC-5013\PLACEBO (LENALIDOMIDE) (CAPSULES) [Suspect]
     Indication: MULTIPLE MYELOMA
     Dosage: 7.5 MG, DAY 1-21, ORAL
     Route: 048
     Dates: start: 20070727, end: 20071003
  2. MELPHALAN (MELPHALAN) [Suspect]
     Indication: MULTIPLE MYELOMA
     Dates: start: 20070827, end: 20070827
  3. PREDNISONE TAB [Suspect]
     Indication: MULTIPLE MYELOMA
     Dates: start: 20070823, end: 20070827
  4. CALCICHEW (CALCIUM CARBONATE) [Concomitant]
  5. MEGACE [Concomitant]
  6. ASPIRIN [Concomitant]
  7. ENOXAPARIN SODIUM [Concomitant]
  8. ATORVASTATIN CALCIUM [Concomitant]
  9. LEVOTHYROXINE SODIUM [Concomitant]
  10. SENNA (SENNA) [Concomitant]
  11. LACTULOSE [Concomitant]
  12. ZOTON (LANSOPRAZOLE) [Concomitant]
  13. BISACODYL (BISACODYL) [Concomitant]
  14. SLOW-K [Concomitant]
  15. CALCICHEW D3 FORTE (LEKOVIT CA) [Concomitant]
  16. CITALOPRAM [Concomitant]
  17. MYCOSTATIN [Concomitant]
  18. NORMISON (TEMAZEPAM) [Concomitant]

REACTIONS (22)
  - BLOOD ALBUMIN DECREASED [None]
  - BLOOD CALCIUM DECREASED [None]
  - BLOOD LACTATE DEHYDROGENASE INCREASED [None]
  - BLOOD PHOSPHORUS DECREASED [None]
  - BODY TEMPERATURE INCREASED [None]
  - CHEST DISCOMFORT [None]
  - CHEST X-RAY ABNORMAL [None]
  - COUGH [None]
  - DEPRESSED MOOD [None]
  - DIARRHOEA [None]
  - DYSPNOEA [None]
  - GENERAL PHYSICAL HEALTH DETERIORATION [None]
  - HAEMOGLOBIN DECREASED [None]
  - LOWER RESPIRATORY TRACT INFECTION [None]
  - MALAISE [None]
  - NEUTROPENIA [None]
  - ORAL CANDIDIASIS [None]
  - OXYGEN SATURATION DECREASED [None]
  - PLATELET COUNT DECREASED [None]
  - PNEUMONIA [None]
  - PROTEIN TOTAL DECREASED [None]
  - WHITE BLOOD CELL COUNT DECREASED [None]
